FAERS Safety Report 23039474 (Version 1)
Quarter: 2023Q4

REPORT INFORMATION
  Report Type: Spontaneous
  Country: AR (occurrence: AR)
  Receive Date: 20231006
  Receipt Date: 20231006
  Transmission Date: 20240109
  Serious: Yes (Hospitalization)
  Sender: FDA-Public Use
  Company Number: AR-PFIZER INC-202300310928

PATIENT
  Sex: Male

DRUGS (2)
  1. XALKORI [Suspect]
     Active Substance: CRIZOTINIB
     Indication: Non-small cell lung cancer stage IV
     Dosage: 2 PER DAY
  2. XALKORI [Suspect]
     Active Substance: CRIZOTINIB
     Dosage: 1 PER DAY

REACTIONS (2)
  - Pleural effusion [Unknown]
  - Prescription drug used without a prescription [Unknown]
